FAERS Safety Report 20083342 (Version 1)
Quarter: 2021Q4

REPORT INFORMATION
  Report Type: Spontaneous
  Country: DE (occurrence: DE)
  Receive Date: 20211117
  Receipt Date: 20211117
  Transmission Date: 20220303
  Serious: Yes (Other)
  Sender: FDA-Public Use
  Company Number: DE-EMBRYOTOX-202008525

PATIENT
  Age: 40 Year
  Sex: Female
  Weight: 61 kg

DRUGS (3)
  1. ARIPIPRAZOLE [Suspect]
     Active Substance: ARIPIPRAZOLE
     Indication: Schizophrenia
     Dosage: 15 MILLIGRAM, QD
     Route: 048
     Dates: start: 20200618, end: 20210329
  2. CLOMIPHENE [Concomitant]
     Active Substance: CLOMIPHENE
     Indication: Infertility female
     Dosage: 50 [MG/D ]
     Route: 048
     Dates: start: 20200619, end: 20200624
  3. LAIF 900 [Concomitant]
     Indication: Depression
     Dosage: 900 [MG/D ]
     Route: 048
     Dates: start: 20200618, end: 20210329

REACTIONS (2)
  - Gestational diabetes [Recovered/Resolved]
  - Exposure during pregnancy [Recovered/Resolved]
